FAERS Safety Report 9753238 (Version 2)
Quarter: 2013Q4

REPORT INFORMATION
  Report Type: Spontaneous
  Country: US (occurrence: US)
  Receive Date: 20131213
  Receipt Date: 20131213
  Transmission Date: 20140711
  Serious: No
  Sender: FDA-Public Use
  Company Number: US-GILEAD-2010-0026908

PATIENT
  Sex: Female
  Weight: 91.17 kg

DRUGS (19)
  1. LETAIRIS [Suspect]
     Indication: PULMONARY ARTERIAL HYPERTENSION
     Route: 048
     Dates: start: 20091125, end: 20100112
  2. LETAIRIS [Suspect]
     Route: 048
     Dates: start: 20100216
  3. VENTAVIS [Concomitant]
  4. REVATIO [Concomitant]
  5. PRINIVIL [Concomitant]
  6. LANOXIN [Concomitant]
  7. ALDACTONE [Concomitant]
  8. LASIX [Concomitant]
  9. COUMADIN [Concomitant]
  10. ASPIRIN [Concomitant]
  11. TRAZODONE [Concomitant]
  12. LEVOTHYROXINE [Concomitant]
  13. LANTUS [Concomitant]
  14. HUMALOG [Concomitant]
  15. PEPCID [Concomitant]
  16. ABILIFY [Concomitant]
  17. ZOLOFT [Concomitant]
  18. CLONAZEPAM [Concomitant]
  19. KLOR-CON [Concomitant]

REACTIONS (1)
  - Liver function test abnormal [Unknown]
